FAERS Safety Report 4921035-6 (Version None)
Quarter: 2006Q1

REPORT INFORMATION
  Report Type: 
  Country: None (occurrence: None)
  Receive Date: 20060223
  Receipt Date: 20060215
  Transmission Date: 20060701
  Serious: Yes (Death, Hospitalization)
  Sender: FDA-Public Use
  Company Number: US-MERCK-0602USA04369

PATIENT
  Age: 87 Year
  Sex: Female

DRUGS (6)
  1. COGENTIN [Suspect]
     Indication: DEMENTIA ALZHEIMER'S TYPE
     Route: 048
     Dates: start: 20050805, end: 20050808
  2. SEROQUEL [Concomitant]
     Route: 065
  3. DEPAKOTE [Concomitant]
     Route: 065
  4. LEXAPRO [Concomitant]
     Route: 065
  5. EXELON [Concomitant]
     Route: 065
  6. NAPROXEN [Concomitant]
     Route: 065

REACTIONS (3)
  - ADVERSE EVENT [None]
  - DEATH [None]
  - HOSPITALISATION [None]
